FAERS Safety Report 4579716-2 (Version None)
Quarter: 2005Q1

REPORT INFORMATION
  Report Type: 
  Country: None (occurrence: None)
  Receive Date: 20050210
  Receipt Date: 20050127
  Transmission Date: 20050727
  Serious: Yes (Hospitalization)
  Sender: FDA-Public Use
  Company Number: USA-2005-0018741

PATIENT
  Age: 48 Year
  Sex: Female
  Weight: 111.6 kg

DRUGS (18)
  1. MS CONTIN [Suspect]
     Indication: PAIN
     Dosage: SEE IMAGE
     Route: 048
  2. MORPHINE SULFATE [Concomitant]
  3. ATIVAN [Concomitant]
  4. FOLATE SODIUM (FOLATE SODIUM) [Concomitant]
  5. NEURONTIN [Concomitant]
  6. REGLAN [Concomitant]
  7. TRAZODONE (TRAZODONE) [Concomitant]
  8. NEXIUM [Concomitant]
  9. ZINC SULFATE (ZINC SULFATE) [Concomitant]
  10. AMBIEN [Concomitant]
  11. VIOKASE (PANCRELIPASE) [Concomitant]
  12. FOLIC ACID [Concomitant]
  13. ULTRASE (PANCRELIPASE) [Concomitant]
  14. PROTONIX [Concomitant]
  15. BEXTRA [Concomitant]
  16. TOPAMAX [Concomitant]
  17. DILAUDID [Concomitant]
  18. PHENERGAN [Concomitant]

REACTIONS (15)
  - ABDOMINAL PAIN LOWER [None]
  - ABDOMINAL PAIN UPPER [None]
  - CHANGE OF BOWEL HABIT [None]
  - CHOKING SENSATION [None]
  - CONDITION AGGRAVATED [None]
  - DIARRHOEA [None]
  - DRUG INEFFECTIVE [None]
  - DYSPEPSIA [None]
  - DYSPHAGIA [None]
  - DYSPNOEA [None]
  - HEPATOSPLENOMEGALY [None]
  - OEDEMA PERIPHERAL [None]
  - PHARYNGOLARYNGEAL PAIN [None]
  - PROCTALGIA [None]
  - WEIGHT DECREASED [None]
